FAERS Safety Report 6583290-9 (Version None)
Quarter: 2010Q1

REPORT INFORMATION
  Report Type: 
  Country: None (occurrence: None)
  Receive Date: 20100216
  Receipt Date: 20100209
  Transmission Date: 20100710
  Serious: Yes (Hospitalization)
  Sender: FDA-Public Use
  Company Number: B0633785A

PATIENT
  Sex: Female

DRUGS (1)
  1. AUGMENTIN [Suspect]
     Indication: BRONCHOPNEUMONIA
     Dosage: 3G PER DAY
     Route: 048
     Dates: start: 20091201, end: 20091203

REACTIONS (2)
  - PETECHIAE [None]
  - RASH ERYTHEMATOUS [None]
